FAERS Safety Report 20102340 (Version 8)
Quarter: 2024Q2

REPORT INFORMATION
  Report Type: Spontaneous
  Country: US (occurrence: US)
  Receive Date: 20211123
  Receipt Date: 20240606
  Transmission Date: 20240716
  Serious: Yes (Other)
  Sender: FDA-Public Use
  Company Number: US-PFIZER INC-2021564471

PATIENT
  Age: 66 Year
  Sex: Female

DRUGS (2)
  1. XELJANZ XR [Suspect]
     Active Substance: TOFACITINIB CITRATE
     Dosage: 11 MG
  2. XELJANZ XR [Suspect]
     Active Substance: TOFACITINIB CITRATE
     Dosage: 11 MG, 1X/DAY (BEFORE MEAL)
     Dates: start: 202206

REACTIONS (11)
  - Senile dementia [Recovering/Resolving]
  - Product dispensing error [Unknown]
  - Product use issue [Unknown]
  - Condition aggravated [Recovering/Resolving]
  - Intervertebral disc degeneration [Recovering/Resolving]
  - Skin discolouration [Recovering/Resolving]
  - Onychomadesis [Recovered/Resolved]
  - Vertigo [Recovering/Resolving]
  - Pain in extremity [Recovering/Resolving]
  - Arthralgia [Recovering/Resolving]
  - Back pain [Recovering/Resolving]
